FAERS Safety Report 18377295 (Version 1)
Quarter: 2020Q4

REPORT INFORMATION
  Report Type: Spontaneous
  Country: US (occurrence: US)
  Receive Date: 20201013
  Receipt Date: 20201013
  Transmission Date: 20210114
  Serious: Yes (Death)
  Sender: FDA-Public Use
  Company Number: US-TEVA-2020-US-1836827

PATIENT
  Sex: Male

DRUGS (6)
  1. LEVAMISOLE [Suspect]
     Active Substance: LEVAMISOLE
     Route: 065
  2. DOXYLAMINE [Suspect]
     Active Substance: DOXYLAMINE
     Route: 065
  3. 7- AMINO CLONAZEPAM [Suspect]
     Active Substance: 7-AMINOCLONAZEPAM
     Route: 065
  4. DEXTRO/LEVO METHORPHAN [Suspect]
     Active Substance: DEXTROMETHORPHAN\LEVOMETHORPHAN
  5. ECGONINE ETHYL ESTER [Suspect]
     Active Substance: ECGONINE ETHYL ESTER
     Route: 065
  6. TEMAZEPAM. [Suspect]
     Active Substance: TEMAZEPAM
     Route: 065

REACTIONS (1)
  - Death [Fatal]
